FAERS Safety Report 5064478-5 (Version None)
Quarter: 2006Q3

REPORT INFORMATION
  Report Type: 
  Country: None (occurrence: None)
  Receive Date: 20060726
  Receipt Date: 20060712
  Transmission Date: 20061208
  Serious: Yes (Other)
  Sender: FDA-Public Use
  Company Number: 2006087300

PATIENT
  Sex: Male
  Weight: 95.2554 kg

DRUGS (1)
  1. SUTENT [Suspect]
     Indication: RENAL CELL CARCINOMA STAGE UNSPECIFIED
     Dosage: 50 MG
     Dates: start: 20060101, end: 20060701

REACTIONS (2)
  - HYPERTENSION [None]
  - SKIN ULCER [None]
